FAERS Safety Report 5051977-5 (Version None)
Quarter: 2006Q3

REPORT INFORMATION
  Report Type: 
  Country: None (occurrence: None)
  Receive Date: 20060710
  Receipt Date: 20060626
  Transmission Date: 20061208
  Serious: Yes (Other)
  Sender: FDA-Public Use
  Company Number: 2006080509

PATIENT
  Age: 48 Year
  Sex: Male

DRUGS (8)
  1. SUTENT [Suspect]
     Indication: RENAL CELL CARCINOMA STAGE UNSPECIFIED
     Dosage: CYCLIC
     Dates: start: 20060501, end: 20060623
  2. ZOMETA [Suspect]
     Indication: HYPERCALCAEMIA
     Dosage: INTRAVENOUS
     Route: 042
     Dates: start: 20060228, end: 20060601
  3. NEXIUM [Concomitant]
  4. PROCRIT [Concomitant]
  5. OXYCONTIN [Concomitant]
  6. PERCOCET [Concomitant]
  7. DECADRON [Concomitant]
  8. WELLBUTRIN [Concomitant]

REACTIONS (3)
  - JAW DISORDER [None]
  - METASTASES TO CENTRAL NERVOUS SYSTEM [None]
  - OSTEONECROSIS [None]
